FAERS Safety Report 8173127-9 (Version None)
Quarter: 2012Q1

REPORT INFORMATION
  Report Type: 
  Country: None (occurrence: None)
  Receive Date: 20120229
  Receipt Date: 20110112
  Transmission Date: 20120608
  Serious: No
  Sender: FDA-Public Use
  Company Number: US-GLAXOSMITHKLINE-A0905438A

PATIENT
  Age: 50 Year
  Sex: Female

DRUGS (6)
  1. IMITREX [Suspect]
     Indication: MIGRAINE
     Dosage: 100MG SINGLE DOSE
     Route: 048
     Dates: start: 20110111
  2. IMITREX [Suspect]
     Dosage: 6MG SINGLE DOSE
     Route: 058
     Dates: start: 20110112
  3. UNKNOWN MEDICATION [Concomitant]
  4. PRISTIQ [Concomitant]
  5. ALPRAZOLAM [Concomitant]
  6. AMITRIPTYLINE HCL [Concomitant]

REACTIONS (1)
  - DRUG INEFFECTIVE [None]
